FAERS Safety Report 9268837 (Version 1)
Quarter: 2013Q2

REPORT INFORMATION
  Report Type: Spontaneous
  Country: BE (occurrence: BE)
  Receive Date: 20130502
  Receipt Date: 20130502
  Transmission Date: 20140414
  Serious: No
  Sender: FDA-Public Use
  Company Number: BE-009507513-1304BEL013423

PATIENT
  Age: 43 Year
  Sex: Female

DRUGS (3)
  1. SYCREST [Suspect]
     Indication: MANIA
     Dosage: UNK UNK, BID
     Route: 048
     Dates: start: 20130412, end: 20130415
  2. SYCREST [Suspect]
     Indication: MANIA
     Dosage: UNK UNK, BID
     Route: 048
     Dates: start: 20130416, end: 20130417
  3. SERLAIN [Concomitant]

REACTIONS (4)
  - Insomnia [Unknown]
  - Anxiety [Recovered/Resolved]
  - Feeling abnormal [Unknown]
  - Chest discomfort [Unknown]
